FAERS Safety Report 4910499-X (Version None)
Quarter: 2006Q1

REPORT INFORMATION
  Report Type: 
  Country: None (occurrence: None)
  Receive Date: 20060209
  Receipt Date: 20060126
  Transmission Date: 20060701
  Serious: Yes (Death, Other)
  Sender: FDA-Public Use
  Company Number: A-JP2006-11549

PATIENT
  Age: 40 Year
  Sex: Male

DRUGS (3)
  1. TRACLEER [Suspect]
     Indication: PULMONARY HYPERTENSION
     Dosage: 62.2 MG, QD, ORAL; 62.5 MG, MG, BID, ORAL
     Route: 048
     Dates: start: 20051205, end: 20051211
  2. TRACLEER [Suspect]
     Indication: PULMONARY HYPERTENSION
     Dosage: 62.2 MG, QD, ORAL; 62.5 MG, MG, BID, ORAL
     Route: 048
     Dates: start: 20051212, end: 20051226
  3. BERAPROST SODIUM (BERAPROST SODIUM) [Concomitant]

REACTIONS (7)
  - ALANINE AMINOTRANSFERASE INCREASED [None]
  - ASPARTATE AMINOTRANSFERASE INCREASED [None]
  - CONDITION AGGRAVATED [None]
  - LIVER FUNCTION TEST ABNORMAL [None]
  - PULMONARY EMBOLISM [None]
  - PULMONARY HYPERTENSION [None]
  - VENOUS THROMBOSIS LIMB [None]
